FAERS Safety Report 4380292-8 (Version None)
Quarter: 2004Q2

REPORT INFORMATION
  Report Type: 
  Country: None (occurrence: None)
  Receive Date: 20040614
  Receipt Date: 20040601
  Transmission Date: 20050107
  Serious: Yes (Hospitalization, Other)
  Sender: FDA-Public Use
  Company Number: 2004037149

PATIENT
  Age: 39 Year
  Sex: Female

DRUGS (4)
  1. ZYRTEC [Suspect]
     Indication: NEURODERMATITIS
     Dosage: 10 MG (1 IN 1 D), ORAL
     Route: 048
     Dates: start: 20021114, end: 20040409
  2. HYDROXYZINE PAMOATE [Suspect]
     Indication: NEURODERMATITIS
     Dosage: 50 MG (1 IN 1 D), ORAL
     Route: 048
     Dates: start: 20021114, end: 20040409
  3. POTASSIUM CITRATE [Concomitant]
  4. DICLOFENAC SODIUM [Concomitant]

REACTIONS (10)
  - ALANINE AMINOTRANSFERASE [None]
  - ASPARTATE AMINOTRANSFERASE [None]
  - BLOOD ALKALINE PHOSPHATASE ABNORMAL [None]
  - BLOOD LACTATE DEHYDROGENASE ABNORMAL [None]
  - EOSINOPHIL COUNT INCREASED [None]
  - GAMMA-GLUTAMYLTRANSFERASE ABNORMAL [None]
  - HEPATIC FUNCTION ABNORMAL [None]
  - NASAL POLYPECTOMY [None]
  - NEUTROPHIL COUNT ABNORMAL [None]
  - PYREXIA [None]
